FAERS Safety Report 14384963 (Version 2)
Quarter: 2018Q1

REPORT INFORMATION
  Report Type: Spontaneous
  Country: FR (occurrence: FR)
  Receive Date: 20180115
  Receipt Date: 20180305
  Transmission Date: 20180509
  Serious: Yes (Life-Threatening, Other)
  Sender: FDA-Public Use
  Company Number: FR-MYLANLABS-2018M1001268

PATIENT
  Age: 43 Year
  Sex: Female

DRUGS (1)
  1. KETAMINE [Suspect]
     Active Substance: KETAMINE
     Indication: GENERAL ANAESTHESIA
     Dosage: 25MG
     Route: 065

REACTIONS (3)
  - Hypoxia [Unknown]
  - Brain hypoxia [Unknown]
  - Maternal exposure during delivery [Recovered/Resolved]
